FAERS Safety Report 9336434 (Version 1)
Quarter: 2013Q2

REPORT INFORMATION
  Report Type: Spontaneous
  Country: US (occurrence: US)
  Receive Date: 20130607
  Receipt Date: 20130607
  Transmission Date: 20140414
  Serious: No
  Sender: FDA-Public Use
  Company Number: US-009507513-1306USA002475

PATIENT
  Sex: Male

DRUGS (2)
  1. JUVISYNC [Suspect]
     Indication: BLOOD CHOLESTEROL INCREASED
     Dosage: UNK
     Route: 048
     Dates: start: 20130531
  2. JUVISYNC [Suspect]
     Indication: DIABETES MELLITUS

REACTIONS (1)
  - Asthenia [Unknown]
